FAERS Safety Report 4591466-5 (Version None)
Quarter: 2005Q1

REPORT INFORMATION
  Report Type: 
  Country: None (occurrence: None)
  Receive Date: 20050223
  Receipt Date: 20050223
  Transmission Date: 20050727
  Serious: No
  Sender: FDA-Public Use
  Company Number: None

PATIENT
  Sex: Female

DRUGS (2)
  1. SYNTHROID [Suspect]
     Indication: ANTIBODY TEST POSITIVE
     Dosage: 0.025 MG QD
  2. SYNTHROID [Suspect]
     Indication: HYPOTHYROIDISM
     Dosage: 0.025 MG QD

REACTIONS (1)
  - PHARMACEUTICAL PRODUCT COMPLAINT [None]
